FAERS Safety Report 5169375-2 (Version None)
Quarter: 2006Q4

REPORT INFORMATION
  Report Type: 
  Country: None (occurrence: None)
  Receive Date: 20061201
  Receipt Date: 20061117
  Transmission Date: 20070319
  Serious: Yes (Hospitalization)
  Sender: FDA-Public Use
  Company Number: 2006S1000261

PATIENT
  Sex: 0

DRUGS (1)
  1. CUBICIN [Suspect]

REACTIONS (3)
  - EOSINOPHIL COUNT INCREASED [None]
  - LUNG INFILTRATION [None]
  - OSTEOMYELITIS [None]
